FAERS Safety Report 5176724-8 (Version None)
Quarter: 2006Q4

REPORT INFORMATION
  Report Type: 
  Country: None (occurrence: None)
  Receive Date: 20061218
  Receipt Date: 20050405
  Transmission Date: 20070319
  Serious: Yes (Hospitalization, Other)
  Sender: FDA-Public Use
  Company Number: US-BAYER-200511445BCC

PATIENT
  Sex: Female

DRUGS (2)
  1. ALEVE [Suspect]
     Indication: ARTHRALGIA
     Dosage: TOTAL DAILY DOSE: 880 MG  UNIT DOSE: 220 MG
     Route: 048
  2. PAIN PILLS (NOS) [Suspect]
     Dosage: TOTAL DAILY DOSE: 2400 MG  UNIT DOSE: 800 MG

REACTIONS (10)
  - ASTHENIA [None]
  - DEPRESSED MOOD [None]
  - FATIGUE [None]
  - HAEMORRHAGE [None]
  - MUSCLE SPASMS [None]
  - PAIN [None]
  - PULMONARY OEDEMA [None]
  - STOMACH DISCOMFORT [None]
  - SUICIDE ATTEMPT [None]
  - SYNCOPE [None]
